FAERS Safety Report 9778462 (Version 3)
Quarter: 2014Q2

REPORT INFORMATION
  Report Type: Spontaneous
  Country: US (occurrence: US)
  Receive Date: 20131223
  Receipt Date: 20140619
  Transmission Date: 20141212
  Serious: Yes (Hospitalization, Other)
  Sender: FDA-Public Use
  Company Number: US-ASTELLAS-2013US013050

PATIENT
  Age: 69 Year
  Sex: Male

DRUGS (20)
  1. XTANDI [Suspect]
     Indication: PROSTATE CANCER
     Route: 048
     Dates: start: 20130629, end: 20130706
  2. XTANDI [Suspect]
     Route: 048
     Dates: start: 20130620, end: 20130626
  3. XTANDI [Suspect]
     Route: 048
     Dates: start: 20130811
  4. TAMSULOSIN [Concomitant]
     Indication: PRODUCT USED FOR UNKNOWN INDICATION
     Route: 065
  5. OXYCONTIN [Concomitant]
     Indication: PAIN
     Dosage: PRN DAILY
     Route: 065
     Dates: start: 20130730
  6. NEXIUM                             /01479302/ [Concomitant]
     Indication: PRODUCT USED FOR UNKNOWN INDICATION
     Route: 065
  7. CARVEDILOL [Concomitant]
     Indication: PRODUCT USED FOR UNKNOWN INDICATION
     Route: 065
  8. CLONIDINE [Concomitant]
     Indication: PRODUCT USED FOR UNKNOWN INDICATION
     Route: 065
  9. AMLODIPINE [Concomitant]
     Indication: PRODUCT USED FOR UNKNOWN INDICATION
     Route: 065
  10. ONDANSETRON [Concomitant]
     Indication: NAUSEA
     Route: 065
  11. CYCLOBENZAPRINE [Concomitant]
     Indication: MUSCLE SPASMS
     Route: 065
  12. SENNA LAX [Concomitant]
     Indication: CONSTIPATION
     Route: 065
  13. LOPERAMIDE [Concomitant]
     Indication: DIARRHOEA
     Route: 065
  14. XGEVA [Concomitant]
     Indication: PROPHYLAXIS
     Route: 058
  15. DEGARELIX [Concomitant]
     Indication: PRODUCT USED FOR UNKNOWN INDICATION
     Route: 065
  16. LOVENOX [Concomitant]
     Indication: PRODUCT USED FOR UNKNOWN INDICATION
     Route: 065
  17. LISINOPRIL [Concomitant]
     Indication: PRODUCT USED FOR UNKNOWN INDICATION
     Route: 065
  18. OXYCODONE [Concomitant]
     Indication: PAIN
     Route: 065
  19. MULTIVITAMINS, PLAIN [Concomitant]
     Indication: PRODUCT USED FOR UNKNOWN INDICATION
     Route: 065
  20. OTHER NUTRIENTS [Concomitant]
     Indication: PRODUCT USED FOR UNKNOWN INDICATION
     Route: 065

REACTIONS (18)
  - Haemorrhage [Unknown]
  - Pulmonary embolism [Unknown]
  - Hypotension [Unknown]
  - Haematochezia [Unknown]
  - Pyrexia [Unknown]
  - Loss of consciousness [Unknown]
  - Blood urine present [Unknown]
  - Blood pressure increased [Not Recovered/Not Resolved]
  - Headache [Unknown]
  - Blood calcium decreased [Unknown]
  - Bedridden [Unknown]
  - Nausea [Unknown]
  - Weight decreased [Unknown]
  - Diarrhoea [Unknown]
  - Herpes zoster [Unknown]
  - Dysgeusia [Unknown]
  - Abdominal discomfort [Unknown]
  - Back pain [Unknown]
